FAERS Safety Report 7507422-0 (Version None)
Quarter: 2011Q2

REPORT INFORMATION
  Report Type: 
  Country: None (occurrence: None)
  Receive Date: 20110526
  Receipt Date: 20110519
  Transmission Date: 20111010
  Serious: Yes (Death, Other)
  Sender: FDA-Public Use
  Company Number: US-BAXTER-2011BH012436

PATIENT
  Age: 61 Year
  Sex: Female

DRUGS (1)
  1. DIANEAL [Suspect]
     Indication: PERITONEAL DIALYSIS
     Route: 033
     Dates: start: 20070508, end: 20110428

REACTIONS (7)
  - INTESTINAL ISCHAEMIA [None]
  - HEAD INJURY [None]
  - PERITONITIS [None]
  - FALL [None]
  - SEPSIS [None]
  - ABDOMINAL COMPARTMENT SYNDROME [None]
  - HYPERTENSIVE CRISIS [None]
